FAERS Safety Report 7488221-5 (Version None)
Quarter: 2011Q2

REPORT INFORMATION
  Report Type: 
  Country: None (occurrence: None)
  Receive Date: 20110518
  Receipt Date: 20110512
  Transmission Date: 20111010
  Serious: Yes (Hospitalization, Other)
  Sender: FDA-Public Use
  Company Number: PHHY2011FR19463

PATIENT
  Sex: Male
  Weight: 64 kg

DRUGS (4)
  1. SERESTA [Concomitant]
     Dosage: 50 MG, UNK
  2. STALEVO 100 [Concomitant]
     Indication: PARKINSON'S DISEASE
     Dosage: 200 MG, QID
  3. NICARDIPINE HCL [Concomitant]
     Dosage: 50 MG, UNK
  4. EXELON [Suspect]
     Indication: DEMENTIA
     Dosage: 9.5 MG, DAILY
     Dates: start: 20080101

REACTIONS (3)
  - APPLICATION SITE RASH [None]
  - APPLICATION SITE PRURITUS [None]
  - BRONCHOPNEUMOPATHY [None]
